FAERS Safety Report 9322320 (Version 1)
Quarter: 2013Q2

REPORT INFORMATION
  Report Type: Spontaneous
  Country: RU (occurrence: RU)
  Receive Date: 20130531
  Receipt Date: 20130531
  Transmission Date: 20140414
  Serious: Yes (Congenital Anomaly)
  Sender: FDA-Public Use
  Company Number: RU-ABBOTT-13X-251-1096732-00

PATIENT
  Sex: 0

DRUGS (1)
  1. DEPAKINE CHRONO [Suspect]
     Indication: MATERNAL EXPOSURE TIMING UNSPECIFIED
     Route: 064

REACTIONS (3)
  - Congenital multiplex arthrogryposis [Unknown]
  - Talipes [Unknown]
  - Foetal exposure during pregnancy [Unknown]
